FAERS Safety Report 14977191 (Version 1)
Quarter: 2018Q2

REPORT INFORMATION
  Report Type: Spontaneous
  Country: US (occurrence: US)
  Receive Date: 20180606
  Receipt Date: 20180606
  Transmission Date: 20180711
  Serious: Yes (Other)
  Sender: FDA-Public Use
  Company Number: US-ASTRAZENECA-2018SE73169

PATIENT
  Age: 56 Year
  Sex: Female
  Weight: 117.9 kg

DRUGS (5)
  1. TUDORZA PRESSAIR [Suspect]
     Active Substance: ACLIDINIUM BROMIDE
     Indication: CHRONIC OBSTRUCTIVE PULMONARY DISEASE
     Route: 055
     Dates: start: 2017
  2. TUDORZA PRESSAIR [Suspect]
     Active Substance: ACLIDINIUM BROMIDE
     Indication: EMPHYSEMA
     Route: 055
     Dates: start: 2017
  3. VENTOLIN [Concomitant]
     Active Substance: ALBUTEROL SULFATE
  4. DULERA [Concomitant]
     Active Substance: FORMOTEROL FUMARATE DIHYDRATE\MOMETASONE FUROATE
  5. TUDORZA PRESSAIR [Suspect]
     Active Substance: ACLIDINIUM BROMIDE
     Indication: BRONCHITIS
     Route: 055
     Dates: start: 2017

REACTIONS (7)
  - Product use in unapproved indication [Unknown]
  - Incorrect dose administered [Unknown]
  - Memory impairment [Not Recovered/Not Resolved]
  - Keratoconus [Not Recovered/Not Resolved]
  - Therapy cessation [Unknown]
  - Off label use [Unknown]
  - Drug dose omission [Recovered/Resolved]

NARRATIVE: CASE EVENT DATE: 2017
